FAERS Safety Report 7178780-4 (Version None)
Quarter: 2010Q4

REPORT INFORMATION
  Report Type: 
  Country: None (occurrence: None)
  Receive Date: 20101221
  Receipt Date: 20101210
  Transmission Date: 20110411
  Serious: Yes (Hospitalization)
  Sender: FDA-Public Use
  Company Number: FR-JNJFOC-20101204912

PATIENT
  Sex: Female

DRUGS (7)
  1. HALDOL [Suspect]
     Indication: DELIRIUM
     Route: 048
  2. TRIMEPRAZINE TARTRATE [Suspect]
     Indication: DELIRIUM
     Route: 048
  3. CLOMIPRAMINE HCL [Suspect]
     Indication: PRODUCT USED FOR UNKNOWN INDICATION
     Route: 048
  4. DIAMICRON [Concomitant]
     Indication: PRODUCT USED FOR UNKNOWN INDICATION
     Route: 048
  5. DIFFU K [Concomitant]
     Indication: PRODUCT USED FOR UNKNOWN INDICATION
     Route: 065
  6. ODRIK [Concomitant]
     Indication: PRODUCT USED FOR UNKNOWN INDICATION
  7. VASTAREL [Concomitant]
     Indication: PRODUCT USED FOR UNKNOWN INDICATION

REACTIONS (3)
  - CONFUSIONAL STATE [None]
  - PNEUMONIA ASPIRATION [None]
  - SEDATION [None]
